FAERS Safety Report 16753873 (Version 1)
Quarter: 2019Q3

REPORT INFORMATION
  Report Type: Spontaneous
  Country: IT (occurrence: IT)
  Receive Date: 20190829
  Receipt Date: 20190829
  Transmission Date: 20191005
  Serious: Yes (Death)
  Sender: FDA-Public Use
  Company Number: IT-ROCHE-2385479

PATIENT
  Age: 68 Year
  Sex: Male

DRUGS (5)
  1. TRIMETON [Concomitant]
     Active Substance: CHLORPHENIRAMINE MALEATE
  2. SOLDESAM [Concomitant]
     Active Substance: DEXAMETHASONE
  3. AVASTIN [Suspect]
     Active Substance: BEVACIZUMAB
     Indication: PRODUCT USED FOR UNKNOWN INDICATION
     Route: 042
     Dates: start: 20190807, end: 20190807
  4. RANITIDINE. [Concomitant]
     Active Substance: RANITIDINE
  5. OXALIPLATIN. [Suspect]
     Active Substance: OXALIPLATIN
     Indication: ADENOCARCINOMA OF COLON
     Route: 042
     Dates: start: 20190807

REACTIONS (4)
  - Syncope [Fatal]
  - Cardiac arrest [Fatal]
  - Anaphylactic shock [Fatal]
  - Angioedema [Fatal]

NARRATIVE: CASE EVENT DATE: 20190807
